FAERS Safety Report 5575578-5 (Version None)
Quarter: 2007Q4

REPORT INFORMATION
  Report Type: 
  Country: None (occurrence: None)
  Receive Date: 20071226
  Receipt Date: 20071218
  Transmission Date: 20080405
  Serious: Yes (Hospitalization)
  Sender: FDA-Public Use
  Company Number: 2007RL000557

PATIENT
  Age: 61 Year
  Sex: Male
  Weight: 107.5025 kg

DRUGS (15)
  1. LOVAZA [Suspect]
     Indication: BLOOD TRIGLYCERIDES INCREASED
     Dosage: 4 GM;QD;PO;2 GM;QD;PO
     Route: 048
     Dates: end: 20071125
  2. LOVAZA [Suspect]
     Indication: BLOOD TRIGLYCERIDES INCREASED
     Dosage: 4 GM;QD;PO;2 GM;QD;PO
     Route: 048
     Dates: start: 20050101
  3. ANDROGEL [Concomitant]
  4. VYTORIN [Concomitant]
  5. HUMALOG [Concomitant]
  6. LANTUS [Concomitant]
  7. NIASPAN [Concomitant]
  8. CLONIDINE [Concomitant]
  9. FUROSEMIDE [Concomitant]
  10. KLOR-CON [Concomitant]
  11. METOPROLOL TARTRATE [Concomitant]
  12. OMEPRAZOLE [Concomitant]
  13. NORVASC [Concomitant]
  14. AVAPRO [Concomitant]
  15. OMEGA 3 [Concomitant]

REACTIONS (3)
  - ANAESTHETIC COMPLICATION [None]
  - GASTRIC BANDING [None]
  - WEIGHT DECREASED [None]
